FAERS Safety Report 26017469 (Version 1)
Quarter: 2025Q4

REPORT INFORMATION
  Report Type: Spontaneous
  Country: JP (occurrence: JP)
  Receive Date: 20251110
  Receipt Date: 20251110
  Transmission Date: 20260117
  Serious: Yes (Hospitalization)
  Sender: BRISTOL-MYERS SQUIBB COMPANY
  Company Number: JP-BRISTOL-MYERS SQUIBB COMPANY-2025-125905

PATIENT

DRUGS (3)
  1. AUGTYRO [Suspect]
     Active Substance: REPOTRECTINIB
     Indication: Non-small cell lung cancer
     Route: 048
     Dates: start: 20250820, end: 20250830
  2. AUGTYRO [Suspect]
     Active Substance: REPOTRECTINIB
     Route: 048
     Dates: start: 20251014
  3. AUGTYRO [Suspect]
     Active Substance: REPOTRECTINIB
     Route: 048

REACTIONS (4)
  - Infection [Recovered/Resolved]
  - Gait disturbance [Recovered/Resolved]
  - Muscular weakness [Recovered/Resolved]
  - Motor dysfunction [Recovered/Resolved]

NARRATIVE: CASE EVENT DATE: 20250930
